FAERS Safety Report 9209976 (Version 1)
Quarter: 2013Q2

REPORT INFORMATION
  Report Type: Spontaneous
  Country: US (occurrence: US)
  Receive Date: 20130404
  Receipt Date: 20130404
  Transmission Date: 20140414
  Serious: No
  Sender: FDA-Public Use
  Company Number: US-ASTELLAS-2013US002567

PATIENT
  Age: 66 Year
  Sex: Female

DRUGS (1)
  1. MYRBETRIQ [Suspect]
     Indication: INCONTINENCE
     Dosage: UNK
     Route: 048

REACTIONS (1)
  - Rhinorrhoea [Unknown]
